FAERS Safety Report 8169480-2 (Version None)
Quarter: 2012Q1

REPORT INFORMATION
  Report Type: 
  Country: None (occurrence: None)
  Receive Date: 20120228
  Receipt Date: 20120217
  Transmission Date: 20120608
  Serious: Yes (Other)
  Sender: FDA-Public Use
  Company Number: JP-SANOFI-AVENTIS-2012SA011801

PATIENT
  Age: 35 Year
  Sex: Male

DRUGS (2)
  1. AMARYL [Suspect]
     Route: 065
     Dates: start: 20090901, end: 20101101
  2. ALL OTHER THERAPEUTIC PRODUCTS [Suspect]
     Route: 065

REACTIONS (1)
  - NEUROLEPTIC MALIGNANT SYNDROME [None]
